FAERS Safety Report 4389975-7 (Version None)
Quarter: 2004Q2

REPORT INFORMATION
  Report Type: 
  Country: None (occurrence: None)
  Receive Date: 20040630
  Receipt Date: 20040617
  Transmission Date: 20050107
  Serious: Yes (Hospitalization)
  Sender: FDA-Public Use
  Company Number: 2004036550

PATIENT
  Age: 63 Year
  Sex: Female

DRUGS (2)
  1. NEURONTIN [Suspect]
     Indication: FACIAL PAIN
     Dosage: (600 MG, UNKNOWN), ORAL
     Route: 048
     Dates: start: 20031112, end: 20031113
  2. CARBAMAZEPINE [Concomitant]

REACTIONS (5)
  - COMA [None]
  - CONDITION AGGRAVATED [None]
  - DIZZINESS [None]
  - NAUSEA [None]
  - TRIGEMINAL NERVE DISORDER [None]
